FAERS Safety Report 7352561-0 (Version None)
Quarter: 2011Q1

REPORT INFORMATION
  Report Type: 
  Country: None (occurrence: None)
  Receive Date: 20110315
  Receipt Date: 20110311
  Transmission Date: 20110831
  Serious: Yes (Other)
  Sender: FDA-Public Use
  Company Number: US-PFIZER INC-2011054538

PATIENT
  Sex: Male

DRUGS (3)
  1. ACETYLSALICYLIC ACID [Suspect]
     Dosage: UNK
  2. GABAPENTIN [Suspect]
     Dosage: UNK
  3. TERAZOSIN [Suspect]
     Dosage: UNK

REACTIONS (1)
  - MULTIPLE SCLEROSIS [None]
